FAERS Safety Report 8977127 (Version 1)
Quarter: 2012Q4

REPORT INFORMATION
  Report Type: 
  Country: JP (occurrence: JP)
  Receive Date: 20121220
  Receipt Date: 20121220
  Transmission Date: 20130627
  Serious: Yes (Death)
  Sender: FDA-Public Use
  Company Number: JP-BAXTER-2012BAX027580

PATIENT
  Sex: Male
  Weight: 53 kg

DRUGS (1)
  1. ADVATE 2000 [Suspect]
     Indication: HAEMOPHILIA A
     Route: 042

REACTIONS (1)
  - Colon cancer [Fatal]
